FAERS Safety Report 9494763 (Version 3)
Quarter: 2013Q4

REPORT INFORMATION
  Report Type: Spontaneous
  Country: US (occurrence: US)
  Receive Date: 20130903
  Receipt Date: 20131105
  Transmission Date: 20140711
  Serious: No
  Sender: FDA-Public Use
  Company Number: US-PFIZER INC-2013250648

PATIENT
  Age: 70 Year
  Sex: Female
  Weight: 61 kg

DRUGS (6)
  1. LEVOTHYROXINE SODIUM [Suspect]
     Indication: THYROID DISORDER
     Dosage: 100 UG, 1X/DAY
  2. LEVOTHYROXINE SODIUM [Suspect]
     Dosage: 100 UG, ALTERNATE DAY
     Dates: start: 201308
  3. LEVOTHYROXINE SODIUM [Suspect]
     Dosage: 100 UG, 1X/DAY
     Dates: start: 201308
  4. LEVOTHYROXINE SODIUM [Suspect]
     Dosage: UNK
  5. INSULIN [Suspect]
     Indication: DIABETES MELLITUS
     Dosage: UNK
     Dates: start: 201307
  6. ZOCOR [Concomitant]
     Dosage: UNK

REACTIONS (5)
  - Intentional drug misuse [Unknown]
  - Tremor [Not Recovered/Not Resolved]
  - Dizziness [Unknown]
  - Rash [Unknown]
  - Middle ear effusion [Unknown]
